FAERS Safety Report 13718669 (Version 1)
Quarter: 2017Q3

REPORT INFORMATION
  Report Type: Spontaneous
  Country: US (occurrence: US)
  Receive Date: 20170705
  Receipt Date: 20170705
  Transmission Date: 20171127
  Serious: Yes (Death, Hospitalization)
  Sender: FDA-Public Use
  Company Number: US-LPDUSPRD-20170912

PATIENT
  Age: 81 Year
  Sex: Female
  Weight: 72.6 kg

DRUGS (2)
  1. EPINEPHRINE INJECTION, USP (1071-25) [Suspect]
     Active Substance: EPINEPHRINE
     Dosage: 4 G
     Route: 040
  2. NOREPINEPHRINE. [Suspect]
     Active Substance: NOREPINEPHRINE
     Dosage: INFUSION
     Route: 042

REACTIONS (3)
  - Stress cardiomyopathy [Fatal]
  - Ventricular fibrillation [Fatal]
  - Cardiac arrest [Fatal]
